FAERS Safety Report 5908777-0 (Version None)
Quarter: 2008Q4

REPORT INFORMATION
  Report Type: 
  Country: None (occurrence: None)
  Receive Date: 20081006
  Receipt Date: 20080926
  Transmission Date: 20090506
  Serious: Yes (Disabling, Other)
  Sender: FDA-Public Use
  Company Number: PHHY2008GB23059

PATIENT
  Sex: Male
  Weight: 90 kg

DRUGS (4)
  1. LAMISIL [Suspect]
     Indication: ONYCHOMYCOSIS
     Dosage: 250MG
     Route: 048
     Dates: start: 20080827, end: 20080829
  2. METFORMIN HCL [Concomitant]
     Indication: DIABETES MELLITUS
     Dosage: 500MG
     Route: 048
     Dates: start: 20051101
  3. PIOGLITAZONE [Concomitant]
     Indication: DIABETES MELLITUS
     Dosage: 45MG
     Route: 048
     Dates: start: 20070601
  4. RANITIDINE [Suspect]
     Dosage: 300MG
     Dates: start: 20031001

REACTIONS (5)
  - ATRIAL FIBRILLATION [None]
  - DYSPNOEA [None]
  - HEART RATE INCREASED [None]
  - HEART RATE IRREGULAR [None]
  - TACHYCARDIA [None]
